FAERS Safety Report 9290653 (Version 1)
Quarter: 2013Q2

REPORT INFORMATION
  Report Type: Spontaneous
  Country: KR (occurrence: None)
  Receive Date: 20130513
  Receipt Date: 20130513
  Transmission Date: 20140414
  Serious: Yes (Death, Other)
  Sender: FDA-Public Use
  Company Number: 2013P1005417

PATIENT
  Sex: 0

DRUGS (3)
  1. IRINOTECAN [Suspect]
     Indication: NON-SMALL CELL LUNG CANCER
     Dosage: 65 MG/M^2;Q3W;IV
  2. CARBOPLATIN [Suspect]
     Indication: NON-SMALL CELL LUNG CANCER
     Dosage: 2.5 MG/ML/MIN;Q3W;IV
  3. UNSPECIFIED 5-HYDROXYTRYPTAMINE-3 ANTAGONISTS [Concomitant]

REACTIONS (2)
  - Pneumonia [None]
  - Toxicity to various agents [None]
